FAERS Safety Report 5535227-9 (Version None)
Quarter: 2007Q4

REPORT INFORMATION
  Report Type: 
  Country: None (occurrence: None)
  Receive Date: 20071206
  Receipt Date: 20071128
  Transmission Date: 20080405
  Serious: Yes (Hospitalization)
  Sender: FDA-Public Use
  Company Number: FR-BRISTOL-MYERS SQUIBB COMPANY-14004972

PATIENT
  Age: 70 Year
  Sex: Female

DRUGS (6)
  1. GLUCOPHAGE [Suspect]
     Route: 048
     Dates: end: 20071030
  2. DIAMICRON [Suspect]
     Indication: TYPE 2 DIABETES MELLITUS
     Route: 048
     Dates: end: 20071030
  3. LASIX [Suspect]
     Indication: HYPERTENSION
     Route: 048
     Dates: end: 20071030
  4. PROPRANOLOL [Suspect]
     Indication: HYPERTENSION
     Route: 048
     Dates: end: 20071030
  5. NEO-MERCAZOLE TAB [Suspect]
     Indication: HYPERTHYROIDISM
     Route: 048
     Dates: end: 20071030
  6. NOVOLOG MIX 70/30 [Concomitant]
     Dates: end: 20071030

REACTIONS (4)
  - ATRIAL FIBRILLATION [None]
  - LACTIC ACIDOSIS [None]
  - RENAL FAILURE ACUTE [None]
  - THROMBOCYTOPENIA [None]
